FAERS Safety Report 6185534-4 (Version None)
Quarter: 2009Q2

REPORT INFORMATION
  Report Type: 
  Country: None (occurrence: None)
  Receive Date: 20090507
  Receipt Date: 20090428
  Transmission Date: 20091009
  Serious: Yes (Death)
  Sender: FDA-Public Use
  Company Number: GXKR2009KR05148

PATIENT
  Age: 59 Year
  Sex: Male

DRUGS (5)
  1. GENTAMICIN [Suspect]
     Indication: BRAIN ABSCESS
     Dosage: INTRAVENTRIC
  2. VANCOMYCIN [Suspect]
     Indication: BRAIN ABSCESS
     Dosage: INTRAVENOUS
  3. METRONIDAZOLE [Suspect]
     Indication: BRAIN ABSCESS
  4. CHLORAMPHENICOL [Suspect]
     Indication: BRAIN ABSCESS
  5. THIRD-GENERATION CEPHALOSPORINS (NO INGREDIENTS/SUBSTANCES) [Concomitant]

REACTIONS (3)
  - GENERAL PHYSICAL HEALTH DETERIORATION [None]
  - KLEBSIELLA SEPSIS [None]
  - NO THERAPEUTIC RESPONSE [None]
